FAERS Safety Report 12301366 (Version 1)
Quarter: 2016Q2

REPORT INFORMATION
  Report Type: Spontaneous
  Country: CN (occurrence: CN)
  Receive Date: 20160425
  Receipt Date: 20160425
  Transmission Date: 20160815
  Serious: Yes (Other)
  Sender: FDA-Public Use
  Company Number: CN-MYLANLABS-2016M1016991

PATIENT

DRUGS (3)
  1. VALPROIC ACID. [Concomitant]
     Active Substance: VALPROIC ACID
     Indication: BENIGN ROLANDIC EPILEPSY
     Route: 065
  2. LEVETIRACETAM. [Suspect]
     Active Substance: LEVETIRACETAM
     Dosage: 25 MG/KG/D, DIVIDED TWICE DAILY
     Route: 048
  3. LEVETIRACETAM. [Suspect]
     Active Substance: LEVETIRACETAM
     Indication: BENIGN ROLANDIC EPILEPSY
     Dosage: 3.125 MG/KG/D, DIVIDED TWICE DAILY; TITRATED TO 25 MG/KG/D
     Route: 048

REACTIONS (1)
  - Pollakiuria [Recovered/Resolved]
